FAERS Safety Report 17893067 (Version 3)
Quarter: 2020Q3

REPORT INFORMATION
  Report Type: Spontaneous
  Country: US (occurrence: US)
  Receive Date: 20200613
  Receipt Date: 20200824
  Transmission Date: 20201103
  Serious: No
  Sender: FDA-Public Use
  Company Number: US-ASTRAZENECA-2020SE72348

PATIENT
  Sex: Female
  Weight: 56.7 kg

DRUGS (1)
  1. SYMBICORT [Suspect]
     Active Substance: BUDESONIDE\FORMOTEROL FUMARATE DIHYDRATE
     Dosage: SYMBICORT 80/4.5 MCG, 2 PUFFS, BID
     Route: 055
     Dates: start: 20200522

REACTIONS (8)
  - Illness [Unknown]
  - Cataract [Unknown]
  - Insurance issue [Unknown]
  - Device leakage [Unknown]
  - Fear [Unknown]
  - Eye haemorrhage [Unknown]
  - Intentional device misuse [Unknown]
  - Incorrect route of product administration [Unknown]
